FAERS Safety Report 6704360-8 (Version None)
Quarter: 2010Q2

REPORT INFORMATION
  Report Type: 
  Country: None (occurrence: None)
  Receive Date: 20100430
  Receipt Date: 20100426
  Transmission Date: 20101027
  Serious: Yes (Disabling)
  Sender: FDA-Public Use
  Company Number: US-MERCK-0912USA03462

PATIENT
  Age: 67 Year
  Sex: Female

DRUGS (7)
  1. FOSAMAX [Suspect]
     Indication: OSTEOPENIA
     Route: 048
     Dates: start: 19990101
  2. FOSAMAX [Suspect]
     Route: 048
     Dates: start: 20030101
  3. FOSAMAX [Suspect]
     Route: 048
     Dates: start: 20030101, end: 20080101
  4. FOSAMAX [Suspect]
     Route: 048
     Dates: start: 20080101
  5. FOSAMAX [Suspect]
     Route: 048
     Dates: start: 20080101
  6. FOSAMAX [Suspect]
     Route: 048
     Dates: start: 20080101
  7. TRIAMTERENE [Concomitant]
     Route: 065

REACTIONS (7)
  - ADVERSE REACTION [None]
  - BONE PAIN [None]
  - INAPPROPRIATE SCHEDULE OF DRUG ADMINISTRATION [None]
  - INFLUENZA LIKE ILLNESS [None]
  - JOINT DISLOCATION [None]
  - PAIN [None]
  - SLUGGISHNESS [None]
